FAERS Safety Report 5455227-7 (Version None)
Quarter: 2007Q3

REPORT INFORMATION
  Report Type: 
  Country: None (occurrence: None)
  Receive Date: 20070913
  Receipt Date: 20070913
  Transmission Date: 20080115
  Serious: Yes (Life-Threatening)
  Sender: FDA-Public Use
  Company Number: None

PATIENT
  Age: 79 Year
  Sex: Male

DRUGS (2)
  1. CIPROFLOXACIN [Suspect]
     Indication: DEEP VEIN THROMBOSIS
     Dosage: 500MG BID PO
     Route: 048
     Dates: start: 20070802, end: 20070816
  2. WARFARIN SODIUM [Suspect]
     Dosage: 4MG EVERY DAY PO
     Route: 048
     Dates: start: 20070802, end: 20070830

REACTIONS (1)
  - INTERNATIONAL NORMALISED RATIO ABNORMAL [None]
